FAERS Safety Report 5004535-2 (Version None)
Quarter: 2006Q2

REPORT INFORMATION
  Report Type: 
  Country: None (occurrence: None)
  Receive Date: 20060516
  Receipt Date: 20060516
  Transmission Date: 20061013
  Serious: Yes (Hospitalization)
  Sender: FDA-Public Use
  Company Number: None

PATIENT
  Age: 81 Year
  Sex: Male
  Weight: 82.1011 kg

DRUGS (1)
  1. PHENYTOIN [Suspect]
     Indication: CONVULSION PROPHYLAXIS
     Dosage: 200 MG QAM PO; 300MG Q PM PO
     Route: 048
     Dates: start: 20051101

REACTIONS (4)
  - ASTHENIA [None]
  - FALL [None]
  - ORAL INTAKE REDUCED [None]
  - SKULL FRACTURE [None]
